FAERS Safety Report 9205111 (Version 2)
Quarter: 2013Q2

REPORT INFORMATION
  Report Type: Spontaneous
  Country: JP (occurrence: JP)
  Receive Date: 20130402
  Receipt Date: 20130409
  Transmission Date: 20140414
  Serious: Yes (Other)
  Sender: FDA-Public Use
  Company Number: JP-VERTEX PHARMACEUTICALS INC.-2013-004339

PATIENT
  Age: 55 Year
  Sex: Female

DRUGS (3)
  1. TELAVIC [Suspect]
     Indication: CHRONIC HEPATITIS C
     Dosage: 1500 MG, QD
     Route: 048
     Dates: start: 20130215, end: 20130308
  2. RIBAVIRIN [Concomitant]
     Indication: CHRONIC HEPATITIS C
     Dosage: 600 MG, QD
     Route: 048
     Dates: start: 20130215, end: 20130308
  3. PEGINTERFERON ALFA-2B [Concomitant]
     Indication: CHRONIC HEPATITIS C
     Dosage: 1.5 ?G/KG, QW
     Route: 058
     Dates: start: 20130215, end: 20130301

REACTIONS (5)
  - Malaise [Recovered/Resolved]
  - Decreased appetite [Recovered/Resolved]
  - Drug eruption [Recovered/Resolved]
  - Anaemia [Recovered/Resolved]
  - Hyperuricaemia [Recovered/Resolved]
